FAERS Safety Report 5364634-2 (Version None)
Quarter: 2007Q2

REPORT INFORMATION
  Report Type: 
  Country: None (occurrence: None)
  Receive Date: 20070607
  Receipt Date: 20060630
  Transmission Date: 20071010
  Serious: Yes (Other)
  Sender: FDA-Public Use
  Company Number: 28667

PATIENT
  Age: 59 Year
  Sex: Female
  Weight: 123.832 kg

DRUGS (1)
  1. DIPYRIDAMOLE [Suspect]
     Indication: CARDIAC STRESS TEST
     Dosage: 50MG/IV/X1
     Route: 042
     Dates: start: 20060630

REACTIONS (2)
  - EXTRAVASATION [None]
  - INJECTION SITE REACTION [None]
